FAERS Safety Report 8632415 (Version 2)
Quarter: 2012Q4

REPORT INFORMATION
  Report Type: Report from Study
  Country: JP (occurrence: JP)
  Receive Date: 20120625
  Receipt Date: 20121107
  Transmission Date: 20130627
  Serious: Yes (Hospitalization, Other)
  Sender: FDA-Public Use
  Company Number: PHHY2012JP053375

PATIENT
  Age: 48 Year
  Sex: Male
  Weight: 76 kg

DRUGS (7)
  1. AFINITOR [Suspect]
     Indication: METASTATIC RENAL CELL CARCINOMA
     Dosage: 10 mg, daily
     Route: 048
     Dates: start: 20110802, end: 20110928
  2. AFINITOR [Suspect]
     Dosage: 5 mg, daily
     Route: 048
     Dates: start: 20110929, end: 20111011
  3. OXYCONTIN [Suspect]
     Indication: METASTATIC RENAL CELL CARCINOMA
     Dosage: 75 mg, UNK
     Dates: start: 20110802
  4. OXINORM [Suspect]
     Dosage: 10 mg, UNK
     Route: 048
     Dates: start: 20110802
  5. SUNITINIB MALATE [Concomitant]
     Indication: METASTATIC RENAL CELL CARCINOMA
     Dosage: 50 mg, UNK
     Route: 048
     Dates: start: 20101109, end: 20110719
  6. NOVAMIN [Concomitant]
     Indication: METASTATIC RENAL CELL CARCINOMA
     Dosage: 15 mg, UNK
     Route: 048
     Dates: start: 20110802
  7. ROPION [Concomitant]
     Indication: METASTATIC RENAL CELL CARCINOMA
     Dosage: 50 mg, UNK
     Dates: start: 20111011, end: 20111120

REACTIONS (6)
  - Asthenia [Recovered/Resolved]
  - Pain [Not Recovered/Not Resolved]
  - Pyrexia [Not Recovered/Not Resolved]
  - C-reactive protein increased [Unknown]
  - Haemoglobin decreased [Unknown]
  - Activities of daily living impaired [None]
